FAERS Safety Report 5825075-4 (Version None)
Quarter: 2008Q3

REPORT INFORMATION
  Report Type: 
  Country: None (occurrence: None)
  Receive Date: 20080724
  Receipt Date: 20080724
  Transmission Date: 20090109
  Serious: Yes (Hospitalization)
  Sender: FDA-Public Use
  Company Number: None

PATIENT
  Sex: Male
  Weight: 73.5281 kg

DRUGS (2)
  1. CISPLATIN [Suspect]
     Indication: SQUAMOUS CELL CARCINOMA
     Dosage: 147 MG Q21 DAYS IVPB
     Route: 042
     Dates: start: 20080512, end: 20080616
  2. PACLITAXEL [Suspect]
     Indication: SQUAMOUS CELL CARCINOMA
     Dosage: 343 MG Q21DAYS IVPB
     Route: 042
     Dates: start: 20080512, end: 20080616

REACTIONS (8)
  - ARTHRITIS INFECTIVE [None]
  - CLOSTRIDIAL INFECTION [None]
  - CULTURE POSITIVE [None]
  - JAUNDICE [None]
  - LIVER FUNCTION TEST ABNORMAL [None]
  - PULMONARY EMBOLISM [None]
  - SEPSIS [None]
  - SYNCOPE [None]
